FAERS Safety Report 5692290-2 (Version None)
Quarter: 2008Q2

REPORT INFORMATION
  Report Type: 
  Country: None (occurrence: None)
  Receive Date: 20080402
  Receipt Date: 20080327
  Transmission Date: 20081010
  Serious: Yes (Hospitalization)
  Sender: FDA-Public Use
  Company Number: FR-JNJFOC-20080306768

PATIENT
  Sex: Female

DRUGS (6)
  1. HALDOL [Suspect]
     Indication: MENTAL DISORDER
     Route: 048
  2. VALIUM [Suspect]
     Indication: MENTAL DISORDER
     Route: 048
  3. TERCIAN [Suspect]
     Indication: MENTAL DISORDER
     Route: 048
  4. LEPTICUR [Suspect]
     Indication: MENTAL DISORDER
     Route: 048
  5. NOZINAN [Suspect]
     Indication: MENTAL DISORDER
     Route: 048
  6. TERALITHE [Concomitant]
     Indication: MENTAL DISORDER

REACTIONS (1)
  - HEPATITIS CHOLESTATIC [None]
